FAERS Safety Report 8564739-9 (Version None)
Quarter: 2012Q3

REPORT INFORMATION
  Report Type: 
  Country: None (occurrence: None)
  Receive Date: 20120803
  Receipt Date: 20120723
  Transmission Date: 20120928
  Serious: No
  Sender: FDA-Public Use
  Company Number: US-009507513-1207USA009756

PATIENT

DRUGS (24)
  1. LYRICA [Suspect]
     Dosage: 75 MG, BID
     Route: 048
  2. TRICOR [Suspect]
  3. MINOCYCLINE HCL [Concomitant]
     Dosage: 100 MG, 1 BEDTIME
  4. CYMBALTA [Concomitant]
     Dosage: 60 MG, 1 MORNING-1NIGHT
  5. PRAVACHOL [Suspect]
  6. CYANOCOBALAMIN [Concomitant]
     Dosage: 50 MG, 1 MORNING
  7. LIPITOR [Suspect]
  8. CALCIUM (UNSPECIFIED) [Concomitant]
     Dosage: 600 MG, 1 NIGHT
  9. ASCORBIC ACID [Concomitant]
     Dosage: 500 MG, 1 NIGHT
  10. ZOCOR [Suspect]
     Route: 048
  11. PAXIL [Suspect]
  12. SAVELLA [Concomitant]
  13. METFORMIN HCL [Concomitant]
     Dosage: 500 MG, 2 MORNING, 2 NIGHT
  14. VITAMINS (UNSPECIFIED) [Concomitant]
     Dosage: 1 MORNING
  15. SOTALOL HYDROCHLORIDE [Concomitant]
     Dosage: 80 MG, 1 MORNING-1NIGHT
  16. CRESTOR [Suspect]
  17. GLYBURIDE [Concomitant]
     Dosage: 2.5 MG, 2 MORNING, 2 NIGHT
  18. LOVAZA [Concomitant]
     Dosage: 300 MG, 1 MORNING
  19. JANUVIA [Concomitant]
     Dosage: 100 MG, MORNING
     Route: 048
  20. LANTUS [Concomitant]
     Dosage: 10 UNIT, HS
  21. ZETIA [Concomitant]
     Dosage: 10 MG, 1 MORNING
     Route: 048
  22. LOSARTAN POTASSIUM [Concomitant]
     Dosage: 50 MG, 1 MORNING
  23. CIPROFLOXACIN [Concomitant]
  24. ASPIRIN [Concomitant]
     Dosage: 81 MG, 1 NIGHT

REACTIONS (3)
  - MUSCULAR WEAKNESS [None]
  - MUSCULOSKELETAL STIFFNESS [None]
  - MYALGIA [None]
